FAERS Safety Report 8916047 (Version 1)
Quarter: 2012Q4

REPORT INFORMATION
  Report Type: 
  Country: SE (occurrence: SE)
  Receive Date: 20121119
  Receipt Date: 20121119
  Transmission Date: 20130627
  Serious: Yes (Hospitalization)
  Sender: FDA-Public Use
  Company Number: SE-PURDUE-GBR-2012-0012102

PATIENT
  Age: 91 Year
  Sex: Female

DRUGS (1)
  1. NORSPAN [Suspect]
     Indication: PAIN
     Dosage: UNK
     Route: 062

REACTIONS (5)
  - Back pain [Recovered/Resolved]
  - Nausea [Recovered/Resolved]
  - Decreased appetite [Recovered/Resolved]
  - Vomiting [Recovered/Resolved]
  - Fatigue [Recovered/Resolved]
